FAERS Safety Report 5062148-0 (Version None)
Quarter: 2006Q3

REPORT INFORMATION
  Report Type: 
  Country: None (occurrence: None)
  Receive Date: 20060721
  Receipt Date: 20060716
  Transmission Date: 20061208
  Serious: Yes (Life-Threatening, Hospitalization, Other)
  Sender: FDA-Public Use
  Company Number: HQWYE062118JUL06

PATIENT
  Age: 52 Year
  Sex: Female

DRUGS (10)
  1. RAPAMUNE [Suspect]
     Indication: PROPHYLAXIS AGAINST TRANSPLANT REJECTION
     Dosage: 2 MG 1X PER 1 DAY ORAL
     Route: 048
     Dates: start: 20051013, end: 20060330
  2. MEDROL ACETATE [Concomitant]
  3. CELLCEPT [Concomitant]
  4. TRIMETAZIDINE DIHYDROCHLORIDE (TRIMETAZIDINE HYDROCHLORIDE) [Concomitant]
  5. COVEREX (PERINDOPRIL) [Concomitant]
  6. MINIPRESS [Concomitant]
  7. ERYTHROPOIETIN (ERYTHROPOIETIN) [Concomitant]
  8. LESCOL [Concomitant]
  9. BETALOC (METOPROLOL TARTRATE) [Concomitant]
  10. ESTULIC (GUANFACINE HYDROCHLORIDE) [Concomitant]

REACTIONS (6)
  - ATRIAL FIBRILLATION [None]
  - COMPLICATIONS OF TRANSPLANTED KIDNEY [None]
  - DIZZINESS [None]
  - GASTROENTERITIS [None]
  - HYPOTENSION [None]
  - URETERIC DILATATION [None]
